FAERS Safety Report 9383925 (Version 5)
Quarter: 2013Q4

REPORT INFORMATION
  Report Type: Spontaneous
  Country: JP (occurrence: JP)
  Receive Date: 20130705
  Receipt Date: 20131002
  Transmission Date: 20140711
  Serious: Yes (Hospitalization, Other)
  Sender: FDA-Public Use
  Company Number: JP-AMGEN-JPNSP2013046737

PATIENT
  Age: 64 Year
  Sex: Female
  Weight: 44.4 kg

DRUGS (7)
  1. ENBREL [Suspect]
     Indication: RHEUMATOID ARTHRITIS
     Dosage: 25 MG, WEEKLY
     Route: 058
     Dates: start: 20130112, end: 20130222
  2. ENBREL [Suspect]
     Dosage: 25 MG, EVERY 2 WEEKS
     Route: 058
     Dates: start: 20130223, end: 20130515
  3. PREDNISOLONE [Concomitant]
     Indication: RHEUMATOID ARTHRITIS
     Dosage: 5 MG, UNK
     Route: 048
     Dates: start: 20111125, end: 20130223
  4. GASTER OD [Concomitant]
     Dosage: 20 MG, UNK
     Route: 048
     Dates: start: 20111125, end: 20130223
  5. CELECOX [Concomitant]
     Indication: PAIN
     Dosage: 400 MG, AS NEEDED
     Route: 048
  6. RHEUMATREX                         /00113801/ [Concomitant]
     Indication: RHEUMATOID ARTHRITIS
     Dosage: 2 MG, UNK
     Route: 065
  7. RHEUMATREX                         /00113801/ [Concomitant]
     Dosage: 4 MG, UNK
     Route: 065
     Dates: start: 20111121, end: 20130515

REACTIONS (1)
  - Nephrotic syndrome [Recovered/Resolved]
